FAERS Safety Report 23235466 (Version 2)
Quarter: 2023Q4

REPORT INFORMATION
  Report Type: Spontaneous
  Country: US (occurrence: US)
  Receive Date: 20231128
  Receipt Date: 20231207
  Transmission Date: 20240109
  Serious: Yes (Other)
  Sender: FDA-Public Use
  Company Number: US-MLMSERVICE-20231116-4669418-1

PATIENT
  Age: 34 Year
  Sex: Male

DRUGS (4)
  1. METHYLPREDNISOLONE [Interacting]
     Active Substance: METHYLPREDNISOLONE
     Dosage: 4 MG
  2. METHYLPREDNISOLONE [Interacting]
     Active Substance: METHYLPREDNISOLONE
     Dosage: TAPER
  3. COBICISTAT [Interacting]
     Active Substance: COBICISTAT
     Indication: HIV infection
     Dosage: UNK
  4. TRIAMCINOLONE [Interacting]
     Active Substance: TRIAMCINOLONE
     Dosage: TOTAL OF NINE INJECTIONS OVER THREE MONTHS AT AN UNKNOWN DOSE
     Route: 008

REACTIONS (3)
  - Drug interaction [Unknown]
  - Cushing^s syndrome [Unknown]
  - Drug level above therapeutic [Unknown]
